FAERS Safety Report 4688829-6 (Version None)
Quarter: 2005Q2

REPORT INFORMATION
  Report Type: 
  Country: None (occurrence: None)
  Receive Date: 20050613
  Receipt Date: 20050302
  Transmission Date: 20051028
  Serious: Yes (Other)
  Sender: FDA-Public Use
  Company Number: AU-GLAXOSMITHKLINE-B0374390A

PATIENT
  Age: 36 Year
  Sex: Female
  Weight: 50 kg

DRUGS (1)
  1. FLIXOTIDE [Suspect]
     Route: 055

REACTIONS (9)
  - ASTHMA [None]
  - CHEST DISCOMFORT [None]
  - CHEST PAIN [None]
  - COUGH [None]
  - DYSGEUSIA [None]
  - INCREASED UPPER AIRWAY SECRETION [None]
  - PHARMACEUTICAL PRODUCT COMPLAINT [None]
  - PHARYNX DISCOMFORT [None]
  - PRODUCTIVE COUGH [None]
